FAERS Safety Report 4359735-1 (Version None)
Quarter: 2004Q2

REPORT INFORMATION
  Report Type: 
  Country: None (occurrence: None)
  Receive Date: 20040518
  Receipt Date: 20040421
  Transmission Date: 20050107
  Serious: Yes (Hospitalization, Other)
  Sender: FDA-Public Use
  Company Number: JP-MERCK-0404USA02254

PATIENT
  Age: 67 Year
  Sex: Female
  Weight: 56 kg

DRUGS (11)
  1. ISALON [Concomitant]
     Route: 065
     Dates: start: 20030801, end: 20040215
  2. NORVASC [Suspect]
     Route: 048
     Dates: start: 20030925, end: 20040215
  3. ATELEC [Concomitant]
     Route: 065
     Dates: end: 20040216
  4. ATELEC [Concomitant]
     Route: 065
     Dates: start: 20040301
  5. DEPAS [Concomitant]
     Route: 048
     Dates: start: 20030801, end: 20040215
  6. DEPAS [Concomitant]
     Route: 065
     Dates: start: 20040301
  7. PEPCID RPD [Suspect]
     Indication: GASTRIC ULCER
     Route: 048
     Dates: start: 20030401, end: 20040215
  8. LOXONIN [Concomitant]
     Route: 048
     Dates: start: 20030801, end: 20040215
  9. CYANOCOBALAMIN [Suspect]
     Route: 065
     Dates: start: 20030801, end: 20040215
  10. NEUROTROPIN [Suspect]
     Route: 065
     Dates: start: 20030801, end: 20040215
  11. PREDNISOLONE [Concomitant]
     Route: 065
     Dates: start: 20030801

REACTIONS (13)
  - ARTERIOSCLEROSIS [None]
  - BLOOD LACTATE DEHYDROGENASE INCREASED [None]
  - DECUBITUS ULCER [None]
  - GASTRIC ULCER [None]
  - HAEMOLYTIC ANAEMIA [None]
  - HYPERTENSION [None]
  - NEPHRITIS [None]
  - NEPHROTIC SYNDROME [None]
  - PLEURAL EFFUSION [None]
  - RENAL CYST [None]
  - SPINAL CORD INJURY CERVICAL [None]
  - SYSTEMIC LUPUS ERYTHEMATOSUS [None]
  - THROMBOCYTOPENIA [None]
